FAERS Safety Report 4486653-0 (Version None)
Quarter: 2004Q4

REPORT INFORMATION
  Report Type: 
  Country: None (occurrence: None)
  Receive Date: 20041027
  Receipt Date: 20041022
  Transmission Date: 20050328
  Serious: Yes (Disabling)
  Sender: FDA-Public Use
  Company Number: 200413280JP

PATIENT
  Age: 68 Year
  Sex: Male

DRUGS (1)
  1. KETEK [Suspect]
     Indication: PNEUMONIA

REACTIONS (4)
  - MUSCULAR WEAKNESS [None]
  - OEDEMA PERIPHERAL [None]
  - PAIN IN EXTREMITY [None]
  - PERIPHERAL PARALYSIS [None]
